FAERS Safety Report 12690298 (Version 1)
Quarter: 2016Q3

REPORT INFORMATION
  Report Type: Spontaneous
  Country: HU (occurrence: HU)
  Receive Date: 20160826
  Receipt Date: 20160826
  Transmission Date: 20161109
  Serious: Yes (Hospitalization, Other)
  Sender: FDA-Public Use
  Company Number: HU-BRISTOL-MYERS SQUIBB COMPANY-BMS-2016-068056

PATIENT
  Sex: Female

DRUGS (1)
  1. ORENCIA [Suspect]
     Active Substance: ABATACEPT
     Indication: RHEUMATOID ARTHRITIS
     Dosage: UNK
     Route: 065
     Dates: start: 201510, end: 2016

REACTIONS (6)
  - Stent placement [Unknown]
  - Myocardial infarction [Unknown]
  - Urinary tract infection [Unknown]
  - Aphthous ulcer [Unknown]
  - Hypertension [Unknown]
  - Oral infection [Unknown]
